FAERS Safety Report 10716559 (Version 2)
Quarter: 2015Q1

REPORT INFORMATION
  Report Type: Spontaneous
  Country: US (occurrence: US)
  Receive Date: 20150116
  Receipt Date: 20150209
  Transmission Date: 20150721
  Serious: Yes (Hospitalization)
  Sender: FDA-Public Use
  Company Number: US-BAYER-2015-004970

PATIENT
  Age: 27 Year
  Sex: Female
  Weight: 54.42 kg

DRUGS (1)
  1. MIRENA [Suspect]
     Active Substance: LEVONORGESTREL
     Indication: CONTRACEPTION
     Dosage: 20 MCG/24HR, CONT
     Route: 015
     Dates: start: 20101004, end: 20101229

REACTIONS (6)
  - Injury [None]
  - Device issue [None]
  - Pelvic pain [None]
  - Pelvic discomfort [None]
  - Uterine perforation [None]
  - Back pain [None]

NARRATIVE: CASE EVENT DATE: 201012
